FAERS Safety Report 5019768-9 (Version None)
Quarter: 2006Q2

REPORT INFORMATION
  Report Type: 
  Country: None (occurrence: None)
  Receive Date: 20060601
  Receipt Date: 20060526
  Transmission Date: 20061013
  Serious: Yes (Other)
  Sender: FDA-Public Use
  Company Number: 2006068739

PATIENT
  Sex: Male

DRUGS (1)
  1. EPELIN KAPSEALS (PHENYTOIN SODIUM) [Suspect]
     Indication: EPILEPSY
     Dosage: 100 MG (100 MG, 1 IN 1 D), ORAL
     Route: 048
     Dates: start: 19960101

REACTIONS (1)
  - DRUG DEPENDENCE [None]
